FAERS Safety Report 6860927-8 (Version None)
Quarter: 2010Q3

REPORT INFORMATION
  Report Type: 
  Country: None (occurrence: None)
  Receive Date: 20100715
  Receipt Date: 20100702
  Transmission Date: 20110219
  Serious: Yes (Hospitalization)
  Sender: FDA-Public Use
  Company Number: 7009884

PATIENT
  Age: 55 Year
  Sex: Female

DRUGS (5)
  1. REBIF [Suspect]
     Indication: MULTIPLE SCLEROSIS
     Dosage: 3 IN 1 WK, SUBCUTANEOUS
     Route: 058
     Dates: start: 20070101
  2. CALCIUM(CALCIUM-SANDOZ   /00009901/) [Concomitant]
  3. VITAMIN D [Concomitant]
  4. IBUPROFEN [Concomitant]
  5. UNSPECIFIED MEDICATION (ALL OTHER THERAPEUTIC PRODUCTS) [Concomitant]

REACTIONS (3)
  - ABASIA [None]
  - DIZZINESS [None]
  - URINARY TRACT INFECTION [None]
